FAERS Safety Report 12084219 (Version 4)
Quarter: 2017Q1

REPORT INFORMATION
  Report Type: Report from Study
  Country: GB (occurrence: GB)
  Receive Date: 20160217
  Receipt Date: 20170127
  Transmission Date: 20170428
  Serious: Yes (Hospitalization, Other)
  Sender: FDA-Public Use
  Company Number: GB-GLAXOSMITHKLINE-GB2016005736

PATIENT
  Age: 69 Year
  Sex: Female

DRUGS (2)
  1. FOSTAIR (BECLOMETASONE/FORMOTEROL) [Concomitant]
     Indication: ASTHMA
     Dosage: 100/6 004 BID
     Route: 055
     Dates: start: 20151217, end: 20160111
  2. FLUTICASONE FUROATE + VILANTEROL TRIFENATATE [Suspect]
     Active Substance: FLUTICASONE FUROATE\VILANTEROL TRIFENATATE
     Indication: ASTHMA
     Dosage: 200/25 UG DAILY
     Route: 055
     Dates: start: 20151130

REACTIONS (2)
  - Asthma [Recovered/Resolved]
  - Pneumonia [Recovered/Resolved]

NARRATIVE: CASE EVENT DATE: 20151216
